FAERS Safety Report 4363604-0 (Version None)
Quarter: 2004Q2

REPORT INFORMATION
  Report Type: 
  Country: None (occurrence: None)
  Receive Date: 20040518
  Receipt Date: 20040506
  Transmission Date: 20050107
  Serious: Yes (Hospitalization)
  Sender: FDA-Public Use
  Company Number: 200410287BNE

PATIENT
  Sex: Male

DRUGS (3)
  1. MOXIFLOXACIN HCL [Suspect]
     Indication: PHARYNGOLARYNGEAL PAIN
     Dosage: 400 MG, TOTAL DAILY, ORAL
     Route: 048
     Dates: start: 20040413, end: 20040414
  2. MOXIFLOXACIN HCL [Suspect]
     Indication: TONSILLITIS
     Dosage: 400 MG, TOTAL DAILY, ORAL
     Route: 048
     Dates: start: 20040413, end: 20040414
  3. KLACID [Concomitant]

REACTIONS (6)
  - ANAPHYLACTOID REACTION [None]
  - HYPOAESTHESIA [None]
  - OBSTRUCTIVE AIRWAYS DISORDER [None]
  - OEDEMA MOUTH [None]
  - PARAESTHESIA [None]
  - PERIPHERAL ISCHAEMIA [None]
